FAERS Safety Report 7969893-5 (Version None)
Quarter: 2011Q4

REPORT INFORMATION
  Report Type: 
  Country: None (occurrence: None)
  Receive Date: 20111212
  Receipt Date: 20111205
  Transmission Date: 20120403
  Serious: Yes (Hospitalization)
  Sender: FDA-Public Use
  Company Number: US-AMGEN-USASP2011064598

PATIENT
  Age: 81 Year
  Sex: Female

DRUGS (1)
  1. ENBREL [Suspect]
     Indication: RHEUMATOID ARTHRITIS
     Dosage: 25 MG, UNK
     Route: 058
     Dates: start: 20030201

REACTIONS (11)
  - FALL [None]
  - FATIGUE [None]
  - HIP FRACTURE [None]
  - WRIST FRACTURE [None]
  - INJECTION SITE PAIN [None]
  - SYNCOPE [None]
  - OSTEOARTHRITIS [None]
  - NONSPECIFIC REACTION [None]
  - DRY MOUTH [None]
  - DEPRESSED MOOD [None]
  - ADVERSE EVENT [None]
